FAERS Safety Report 5382225-4 (Version None)
Quarter: 2007Q3

REPORT INFORMATION
  Report Type: 
  Country: None (occurrence: None)
  Receive Date: 20070709
  Receipt Date: 20070627
  Transmission Date: 20080115
  Serious: Yes (Disabling, Other)
  Sender: FDA-Public Use
  Company Number: NL-PFIZER INC-2007053605

PATIENT
  Sex: Female

DRUGS (1)
  1. SUTENT [Suspect]
     Route: 048

REACTIONS (2)
  - PAIN IN EXTREMITY [None]
  - WALKING DISABILITY [None]
